FAERS Safety Report 6375911-0 (Version None)
Quarter: 2009Q3

REPORT INFORMATION
  Report Type: 
  Country: None (occurrence: None)
  Receive Date: 20090924
  Receipt Date: 20090916
  Transmission Date: 20100115
  Serious: Yes (Hospitalization)
  Sender: FDA-Public Use
  Company Number: JP-AMGEN-US365575

PATIENT
  Sex: Female

DRUGS (1)
  1. ENBREL [Suspect]
     Indication: ARTHRITIS
     Dosage: UNSPECIFIED
     Route: 058

REACTIONS (5)
  - CONDITION AGGRAVATED [None]
  - GRANULOMA [None]
  - PYREXIA [None]
  - SARCOIDOSIS [None]
  - VASCULITIS [None]
